FAERS Safety Report 5444417-5 (Version None)
Quarter: 2007Q3

REPORT INFORMATION
  Report Type: 
  Country: None (occurrence: None)
  Receive Date: 20070906
  Receipt Date: 20070831
  Transmission Date: 20080115
  Serious: Yes (Disabling, Other)
  Sender: FDA-Public Use
  Company Number: PHFR2007GB02516

PATIENT
  Age: 76 Year
  Sex: Female

DRUGS (5)
  1. ZOMETA [Suspect]
     Indication: MULTIPLE MYELOMA
     Dosage: UNK, UNK
     Route: 042
     Dates: start: 20061204, end: 20070426
  2. MORPHINE SULFATE [Concomitant]
     Indication: PAIN
     Dosage: 20 MG, BID
     Route: 048
  3. GABAPENTIN [Concomitant]
     Indication: NEUROPATHY
     Dosage: 100 MG, QD
     Route: 048
  4. METFORMIN HCL [Concomitant]
     Indication: DIABETES MELLITUS
     Dosage: 850 MG, BID
     Route: 048
  5. IBUPROFEN [Concomitant]
     Indication: PAIN
     Dosage: 400 MG, TID
     Route: 048

REACTIONS (7)
  - ABSCESS [None]
  - ABSCESS DRAINAGE [None]
  - EDENTULOUS [None]
  - GINGIVAL ABSCESS [None]
  - OSTEONECROSIS [None]
  - PAIN [None]
  - SWELLING [None]
